FAERS Safety Report 9814293 (Version 2)
Quarter: 2014Q3

REPORT INFORMATION
  Report Type: Spontaneous
  Country: US (occurrence: US)
  Receive Date: 20140113
  Receipt Date: 20140731
  Transmission Date: 20150326
  Serious: Yes (Hospitalization, Other)
  Sender: FDA-Public Use
  Company Number: US-009507513-1401USA004163

PATIENT
  Sex: Female
  Weight: 93.42 kg

DRUGS (1)
  1. NUVARING [Suspect]
     Active Substance: ETHINYL ESTRADIOL\ETONOGESTREL
     Indication: AMENORRHOEA
     Dosage: 0.12MG/0.015MG
     Route: 067
     Dates: start: 20070426, end: 200706

REACTIONS (12)
  - Pulmonary embolism [Unknown]
  - Pulmonary embolism [Unknown]
  - Off label use [Unknown]
  - Chest pain [Recovering/Resolving]
  - Coagulopathy [Unknown]
  - Deep vein thrombosis [Unknown]
  - Lung infiltration [Unknown]
  - Pulmonary embolism [Unknown]
  - Hypertension [Unknown]
  - Transaminases increased [Unknown]
  - Neck pain [Unknown]
  - Thymoma [Unknown]

NARRATIVE: CASE EVENT DATE: 2007
